FAERS Safety Report 5954670-7 (Version None)
Quarter: 2008Q4

REPORT INFORMATION
  Report Type: 
  Country: None (occurrence: None)
  Receive Date: 20081112
  Receipt Date: 20081105
  Transmission Date: 20090506
  Serious: Yes (Hospitalization)
  Sender: FDA-Public Use
  Company Number: 2008SP022594

PATIENT

DRUGS (2)
  1. PEGATRON (PEGINTERFERON ALFA-2B W/RIBAVIRIN) (PEGYLATED INTERFERON ALF [Suspect]
     Indication: DRUG USE FOR UNKNOWN INDICATION
     Dosage: 135 MCG;, 1000 MG; PO
     Route: 048
     Dates: start: 20080612
  2. PEGATRON (PEGINTERFERON ALFA-2B W/RIBAVIRIN) (PEGYLATED INTERFERON ALF [Suspect]
     Indication: DRUG USE FOR UNKNOWN INDICATION
     Dosage: 135 MCG;, 1000 MG; PO
     Route: 048
     Dates: start: 20080612

REACTIONS (2)
  - CHOLECYSTITIS [None]
  - PANCREATITIS [None]
